FAERS Safety Report 9820062 (Version 1)
Quarter: 2013Q4

REPORT INFORMATION
  Report Type: Spontaneous
  Country: US (occurrence: None)
  Receive Date: 20131223
  Receipt Date: 20131223
  Transmission Date: 20140711
  Serious: Yes (Other)
  Sender: FDA-Public Use
  Company Number: 220977

PATIENT
  Age: 59 Year
  Sex: Male

DRUGS (1)
  1. PICATO [Suspect]
     Indication: ACTINIC KERATOSIS
     Dosage: 2 TUBES DAILY, DERMAL
     Dates: start: 20130314

REACTIONS (5)
  - Application site pruritus [None]
  - Application site nodule [None]
  - Inappropriate schedule of drug administration [None]
  - Incorrect dose administered [None]
  - Drug administered at inappropriate site [None]
